FAERS Safety Report 17351685 (Version 6)
Quarter: 2022Q1

REPORT INFORMATION
  Report Type: Report from Study
  Country: US (occurrence: US)
  Receive Date: 20200130
  Receipt Date: 20220222
  Transmission Date: 20220423
  Serious: Yes (Hospitalization, Other)
  Sender: FDA-Public Use
  Company Number: US-PFIZER INC-2020039732

PATIENT
  Age: 19 Year
  Sex: Male
  Weight: 103.5 kg

DRUGS (14)
  1. VINCRISTINE SULFATE [Suspect]
     Active Substance: VINCRISTINE SULFATE
     Indication: B precursor type acute leukaemia
     Dosage: 220 MILLIGRAM /PROTOCOL
     Route: 042
     Dates: start: 20190218, end: 20191027
  2. VINCRISTINE SULFATE [Suspect]
     Active Substance: VINCRISTINE SULFATE
     Dosage: 220 MILLIGRAM /PROTOCOL
     Route: 042
     Dates: start: 20191029, end: 20191118
  3. VINCRISTINE SULFATE [Suspect]
     Active Substance: VINCRISTINE SULFATE
     Dosage: 220 MILLIGRAM /PROTOCOL
     Route: 042
     Dates: start: 20191126
  4. METHOTREXATE SODIUM [Suspect]
     Active Substance: METHOTREXATE SODIUM
     Indication: B precursor type acute leukaemia
     Dosage: 220 MILLIGRAM /PROTOCOL
     Route: 042
     Dates: start: 20190218, end: 20191127
  5. METHOTREXATE SODIUM [Suspect]
     Active Substance: METHOTREXATE SODIUM
     Dosage: 220 MILLIGRAM /PROTOCOL
     Route: 042
     Dates: start: 20191029, end: 20191118
  6. METHOTREXATE SODIUM [Suspect]
     Active Substance: METHOTREXATE SODIUM
     Dosage: 220 MILLIGRAM /PROTOCOL
     Route: 042
     Dates: start: 20191126
  7. RUXOLITINIB [Suspect]
     Active Substance: RUXOLITINIB
     Indication: B precursor type acute leukaemia
     Dosage: 110 MG, BID
     Route: 048
     Dates: start: 20190218, end: 20191027
  8. RUXOLITINIB [Suspect]
     Active Substance: RUXOLITINIB
     Dosage: 110 MG, BID
     Route: 048
     Dates: start: 20191029, end: 20191118
  9. RUXOLITINIB [Suspect]
     Active Substance: RUXOLITINIB
     Dosage: 110 MG, BID, CYCLIC
     Route: 048
     Dates: start: 20191126
  10. PEGASPARGASE [Suspect]
     Active Substance: PEGASPARGASE
     Indication: B precursor type acute leukaemia
     Dosage: IU/M2, 220 MILLIGRAM/PROTOCOL
     Route: 042
     Dates: start: 20190218, end: 20191027
  11. PEGASPARGASE [Suspect]
     Active Substance: PEGASPARGASE
     Dosage: IU/M2, 220 MILLIGRAM/PROTOCOL
     Route: 042
     Dates: start: 20191029, end: 20191118
  12. PEGASPARGASE [Suspect]
     Active Substance: PEGASPARGASE
     Dosage: IU/M2, 220 MILLIGRAM/PROTOCOL
     Route: 042
     Dates: start: 20191126
  13. HYDROXYZINE [Concomitant]
     Active Substance: HYDROXYZINE HYDROCHLORIDE
     Dosage: UNK
     Dates: start: 20190218
  14. MOTRIN [Concomitant]
     Active Substance: IBUPROFEN
     Dosage: UNK
     Dates: start: 20190316

REACTIONS (5)
  - Colitis [Recovered/Resolved]
  - Hepatic steatosis [Recovering/Resolving]
  - Iron overload [Recovering/Resolving]
  - Gamma-glutamyltransferase increased [Recovering/Resolving]
  - Pyrexia [Recovered/Resolved]

NARRATIVE: CASE EVENT DATE: 20191027
